FAERS Safety Report 24040256 (Version 1)
Quarter: 2024Q3

REPORT INFORMATION
  Report Type: Spontaneous
  Country: JP (occurrence: JP)
  Receive Date: 20240702
  Receipt Date: 20240702
  Transmission Date: 20241016
  Serious: Yes (Hospitalization)
  Sender: ACCORD
  Company Number: JP-Accord-431959

PATIENT
  Age: 50 Year
  Sex: Male
  Weight: 76.7 kg

DRUGS (2)
  1. CLOZAPINE [Suspect]
     Active Substance: CLOZAPINE
     Indication: Schizophrenia
     Dosage: GRADUALLY INCREASED TO 500 MG IN SEP
  2. CLOZAPINE [Suspect]
     Active Substance: CLOZAPINE
     Indication: Schizophrenia
     Dosage: TREATMENT WAS INITIATED IN MAY

REACTIONS (2)
  - Postprandial hypoglycaemia [Recovered/Resolved]
  - Glucose tolerance impaired [Recovered/Resolved]
